FAERS Safety Report 7597282-4 (Version None)
Quarter: 2011Q3

REPORT INFORMATION
  Report Type: 
  Country: None (occurrence: None)
  Receive Date: 20110708
  Receipt Date: 20110225
  Transmission Date: 20111222
  Serious: No
  Sender: FDA-Public Use
  Company Number: US-GLAXOSMITHKLINE-A0915390A

PATIENT
  Age: 68 Year
  Sex: Female

DRUGS (4)
  1. LANTUS [Concomitant]
  2. FLOVENT [Suspect]
     Indication: ASTHMA
     Dosage: 2PUFF TWICE PER DAY
     Route: 055
     Dates: start: 20110214
  3. PROAIR HFA [Concomitant]
  4. NOVOLOG [Concomitant]

REACTIONS (2)
  - PRODUCTIVE COUGH [None]
  - RASH [None]
